FAERS Safety Report 7466636-9 (Version None)
Quarter: 2011Q2

REPORT INFORMATION
  Report Type: 
  Country: None (occurrence: None)
  Receive Date: 20110509
  Receipt Date: 20110505
  Transmission Date: 20111010
  Serious: Yes (Death, Hospitalization)
  Sender: FDA-Public Use
  Company Number: US-SANOFI-AVENTIS-2011SA028008

PATIENT
  Age: 61 Year
  Sex: Male
  Weight: 70.45 kg

DRUGS (6)
  1. DOCETAXEL [Suspect]
     Indication: NON-SMALL CELL LUNG CANCER
     Route: 042
     Dates: start: 20051216, end: 20051216
  2. DOCETAXEL [Suspect]
     Route: 042
     Dates: start: 20060331, end: 20060331
  3. ERBITUX [Suspect]
     Indication: NON-SMALL CELL LUNG CANCER
     Route: 042
     Dates: start: 20051216
  4. PREDNISONE [Concomitant]
     Indication: COUGH
  5. ERBITUX [Suspect]
     Route: 042
     Dates: end: 20060811
  6. TESSALON [Concomitant]
     Indication: COUGH

REACTIONS (3)
  - SUDDEN DEATH [None]
  - HAEMOPTYSIS [None]
  - INJURY [None]
